FAERS Safety Report 20383901 (Version 2)
Quarter: 2022Q1

REPORT INFORMATION
  Report Type: Other
  Country: US (occurrence: None)
  Receive Date: 20220127
  Receipt Date: 20220308
  Transmission Date: 20220423
  Serious: Yes (Hospitalization)
  Sender: FDA-Public Use
  Company Number: US-ROCHE-3004966

PATIENT
  Sex: Female

DRUGS (5)
  1. ROZLYTREK [Suspect]
     Active Substance: ENTRECTINIB
     Indication: Lung neoplasm malignant
     Dosage: TAKE 2 CAPSULE(S) BY MOUTH EVERY DAY ON DAYS 1-28
     Route: 048
  2. ROZLYTREK [Suspect]
     Active Substance: ENTRECTINIB
     Indication: Malignant lymphoid neoplasm
  3. SULINDAC [Concomitant]
     Active Substance: SULINDAC
  4. ERYTHROMYCIN [Concomitant]
     Active Substance: ERYTHROMYCIN
  5. FENTANYL [Concomitant]
     Active Substance: FENTANYL

REACTIONS (3)
  - COVID-19 [Unknown]
  - Pneumonia [Unknown]
  - Dizziness [Unknown]
